FAERS Safety Report 7180246-2 (Version None)
Quarter: 2010Q4

REPORT INFORMATION
  Report Type: 
  Country: None (occurrence: None)
  Receive Date: 20101209
  Receipt Date: 20101124
  Transmission Date: 20110411
  Serious: Yes (Hospitalization)
  Sender: FDA-Public Use
  Company Number: 022867

PATIENT
  Sex: Male
  Weight: 57 kg

DRUGS (17)
  1. CIMZIA [Suspect]
     Indication: CROHN'S DISEASE
     Dosage: 400 MG 1X/28 DAYS, SUBCUTANEOUS
     Route: 058
     Dates: start: 20090201
  2. PREDNISONE [Concomitant]
  3. FENOFIBRATE [Concomitant]
  4. GABAPENTIN [Concomitant]
  5. OXYCONTIN [Concomitant]
  6. MULTI-VITAMIN [Concomitant]
  7. CALCIUM WITH VITAMIN D [Concomitant]
  8. ACIDOPHILUS [Concomitant]
  9. VITAMIN B COMPLEX [Concomitant]
  10. AMLODIPINE [Concomitant]
  11. CALCITONIN [Concomitant]
  12. ATENOLOL [Concomitant]
  13. TEMAZEPAM [Concomitant]
  14. POTASSIUM CHLORIDE [Concomitant]
  15. MAGNESIUM OXIDE [Concomitant]
  16. FLUOXETINE [Concomitant]
  17. ASPIRIN [Concomitant]

REACTIONS (3)
  - ABDOMINAL ADHESIONS [None]
  - GASTROINTESTINAL INFECTION [None]
  - INTESTINAL PERFORATION [None]
